FAERS Safety Report 18925800 (Version 1)
Quarter: 2021Q1

REPORT INFORMATION
  Report Type: Spontaneous
  Country: DE (occurrence: DE)
  Receive Date: 20210222
  Receipt Date: 20210222
  Transmission Date: 20210420
  Serious: Yes (Hospitalization, Other)
  Sender: FDA-Public Use
  Company Number: DE-JNJFOC-20210217830

PATIENT
  Age: 18 Year
  Sex: Female

DRUGS (11)
  1. SUCCINYLCHOLINE [Suspect]
     Active Substance: SUCCINYLCHOLINE
     Indication: MUSCLE RELAXANT THERAPY
     Dosage: 1.5 MG/KG
     Route: 042
  2. MIDAZOLAM. [Suspect]
     Active Substance: MIDAZOLAM
     Indication: SEIZURE
     Dosage: 1.5 MG
     Route: 042
  3. SODIUM CITRATE. [Suspect]
     Active Substance: SODIUM CITRATE
     Indication: DRUG THERAPY
     Dosage: 30 ML (0.3 MOLAR)
     Route: 048
  4. MIDAZOLAM. [Suspect]
     Active Substance: MIDAZOLAM
     Indication: PSYCHOTIC SYMPTOM
     Route: 042
  5. METHOHEXITAL [Suspect]
     Active Substance: METHOHEXITAL
     Indication: ANAESTHESIA
     Dosage: 1 MG/KG
     Route: 042
  6. QUETIAPINE. [Suspect]
     Active Substance: QUETIAPINE
     Dosage: 700 UG PER DAY
     Route: 048
  7. RISPERDAL [Suspect]
     Active Substance: RISPERIDONE
     Indication: SCHIZOAFFECTIVE DISORDER
     Dosage: 7 MG PER DAY
     Route: 065
  8. DIAZEPAM. [Suspect]
     Active Substance: DIAZEPAM
     Indication: SCHIZOAFFECTIVE DISORDER
     Dosage: 30 MG PER DAY
     Route: 065
  9. GLYCOPYRRONIUM BROMIDE [Suspect]
     Active Substance: GLYCOPYRRONIUM
     Indication: PROPHYLAXIS
     Dosage: 0.2 MG
     Route: 042
  10. QUETIAPINE. [Suspect]
     Active Substance: QUETIAPINE
     Indication: SCHIZOAFFECTIVE DISORDER
     Dosage: 1000 MG PER DAY
     Route: 048
  11. METHOHEXITAL [Suspect]
     Active Substance: METHOHEXITAL
     Dosage: 1.6 MG/KG
     Route: 064

REACTIONS (6)
  - Exposure during pregnancy [Unknown]
  - Fear [Unknown]
  - Aggression [Unknown]
  - Seizure [Unknown]
  - Memory impairment [Unknown]
  - Drug ineffective [Unknown]
